FAERS Safety Report 7981329-7 (Version None)
Quarter: 2011Q4

REPORT INFORMATION
  Report Type: 
  Country: None (occurrence: None)
  Receive Date: 20111213
  Receipt Date: 20111128
  Transmission Date: 20120403
  Serious: Yes (Hospitalization, Other)
  Sender: FDA-Public Use
  Company Number: E2B _00000134

PATIENT
  Sex: Male
  Weight: 4.06 kg

DRUGS (3)
  1. LAMOTRIGINE [Suspect]
     Indication: EPILEPSY
     Dosage: 350 [MG/D ],TRANSPLACENTAL
     Route: 064
  2. POTASSIUM IODIDE (KALIUMJODID) [Concomitant]
  3. FOLIC ACID (FOLSAURE)(UNKNOWN) [Concomitant]

REACTIONS (2)
  - MATERNAL DRUGS AFFECTING FOETUS [None]
  - SOMNOLENCE [None]
